FAERS Safety Report 6347301-8 (Version None)
Quarter: 2009Q3

REPORT INFORMATION
  Report Type: 
  Country: None (occurrence: None)
  Receive Date: 20090910
  Receipt Date: 20090831
  Transmission Date: 20100115
  Serious: Yes (Hospitalization)
  Sender: FDA-Public Use
  Company Number: PHHY2009FR37016

PATIENT
  Sex: Male

DRUGS (7)
  1. VOLTAREN [Suspect]
     Dosage: 2 DF, BID
     Dates: start: 20090529, end: 20090529
  2. KARDEGIC [Interacting]
     Indication: ANGINA PECTORIS
     Dosage: 75 MG, QD
     Dates: start: 20090529, end: 20090529
  3. DILTIAZEM [Concomitant]
  4. VASTAREL [Concomitant]
  5. CRESTOR [Concomitant]
  6. LANSOPRAZOLE [Concomitant]
  7. GAVISCON [Concomitant]

REACTIONS (6)
  - ANAEMIA [None]
  - DRUG INTERACTION [None]
  - GASTRIC HAEMORRHAGE [None]
  - HAEMATEMESIS [None]
  - MELAENA [None]
  - THROMBOSIS [None]
